FAERS Safety Report 9466728 (Version 1)
Quarter: 2013Q3

REPORT INFORMATION
  Report Type: Spontaneous
  Country: US (occurrence: US)
  Receive Date: 20130820
  Receipt Date: 20130820
  Transmission Date: 20140515
  Serious: No
  Sender: FDA-Public Use
  Company Number: US-TEVA-398734USA

PATIENT
  Age: 37 Year
  Sex: Female
  Weight: 55.39 kg

DRUGS (5)
  1. FLUCONAZOLE [Suspect]
     Indication: FUNGAL INFECTION
     Dosage: 150 MILLIGRAM DAILY;
     Route: 048
     Dates: start: 20130321, end: 20130321
  2. SULFAMETHOXAZOLE W/TRIMETHOPRIM [Suspect]
     Indication: URINARY TRACT INFECTION
     Route: 048
     Dates: start: 20130321, end: 20130328
  3. METRONIDAZOLE [Suspect]
     Indication: VAGINITIS BACTERIAL
     Dosage: 750 MILLIGRAM DAILY;
     Route: 048
     Dates: start: 20130317, end: 20130323
  4. CELEXA [Concomitant]
  5. WELLBUTRIN [Concomitant]

REACTIONS (9)
  - Dyspnoea [Recovered/Resolved]
  - Chills [Recovered/Resolved]
  - Ligament sprain [Unknown]
  - Musculoskeletal pain [Not Recovered/Not Resolved]
  - Pyrexia [Recovered/Resolved]
  - Vomiting [Recovered/Resolved]
  - Myalgia [Recovered/Resolved]
  - Rash [Recovered/Resolved]
  - Swelling face [Recovered/Resolved]
